FAERS Safety Report 14337745 (Version 1)
Quarter: 2017Q4

REPORT INFORMATION
  Report Type: Spontaneous
  Country: US (occurrence: US)
  Receive Date: 20171229
  Receipt Date: 20171229
  Transmission Date: 20180321
  Serious: Yes (Other)
  Sender: FDA-Public Use
  Company Number: US-ALLERGAN-1760694US

PATIENT
  Age: 49 Year
  Sex: Male

DRUGS (1)
  1. GENTAMICIN UNK [Suspect]
     Active Substance: GENTAMICIN
     Indication: AGRANULOCYTOSIS
     Dosage: UNK
     Route: 065
     Dates: start: 1991, end: 1991

REACTIONS (3)
  - Off label use [Unknown]
  - Hypersensitivity [Not Recovered/Not Resolved]
  - Renal failure [Recovered/Resolved]

NARRATIVE: CASE EVENT DATE: 1991
